FAERS Safety Report 12221316 (Version 3)
Quarter: 2016Q2

REPORT INFORMATION
  Report Type: Report from Study
  Country: BE (occurrence: BE)
  Receive Date: 20160330
  Receipt Date: 20160429
  Transmission Date: 20160815
  Serious: Yes (Hospitalization)
  Sender: FDA-Public Use
  Company Number: BE-ABBVIE-15P-013-1430575-00

PATIENT
  Age: 77 Year
  Sex: Male

DRUGS (15)
  1. DUODOPA [Suspect]
     Active Substance: CARBIDOPA\LEVODOPA
     Dosage: AM=7ML; CD=3.1ML/HR DURING 16HRS; ED=2ML
     Route: 050
     Dates: start: 20150717, end: 20150723
  2. EXELON [Concomitant]
     Active Substance: RIVASTIGMINE TARTRATE
     Indication: PRODUCT USED FOR UNKNOWN INDICATION
  3. ZYLORIC [Concomitant]
     Active Substance: ALLOPURINOL
     Indication: PRODUCT USED FOR UNKNOWN INDICATION
  4. DUODOPA [Suspect]
     Active Substance: CARBIDOPA\LEVODOPA
     Dosage: AM=8; CD=3.1 ML/HR DURING 16 HOURS; ED=2 ML
     Route: 050
     Dates: start: 20160225
  5. DUODOPA [Suspect]
     Active Substance: CARBIDOPA\LEVODOPA
     Dosage: AM = 8 ML, CD = 3.3 ML/H DURING 16H, ED = 2 ML
     Route: 050
     Dates: start: 20150724, end: 20150805
  6. DIAZEPAM. [Concomitant]
     Active Substance: DIAZEPAM
     Indication: MUSCLE SPASMS
  7. DUODOPA [Suspect]
     Active Substance: CARBIDOPA\LEVODOPA
     Dosage: AM = 8 ML, CD = 3.5 ML/H DURING 16H, ED = 2 ML
     Route: 050
     Dates: start: 20150805, end: 20151211
  8. DAFALGAN [Concomitant]
     Active Substance: ACETAMINOPHEN
     Indication: PRODUCT USED FOR UNKNOWN INDICATION
  9. DUODOPA [Suspect]
     Active Substance: CARBIDOPA\LEVODOPA
     Dosage: AM = 8 ML, CD = 3.1 ML/H DURING 16H, ED = 2 ML
     Route: 050
     Dates: start: 20150723, end: 20150724
  10. MACROGOL [Concomitant]
     Active Substance: POLYETHYLENE GLYCOLS
     Indication: PRODUCT USED FOR UNKNOWN INDICATION
  11. TENORMIN [Concomitant]
     Active Substance: ATENOLOL
     Indication: PRODUCT USED FOR UNKNOWN INDICATION
  12. DUODOPA [Suspect]
     Active Substance: CARBIDOPA\LEVODOPA
     Indication: PARKINSON^S DISEASE
     Dosage: AM=7ML; CD=3.1ML/HR DURING 16HRS; ED=2ML
     Route: 050
     Dates: start: 20150713, end: 20150717
  13. DUODOPA [Suspect]
     Active Substance: CARBIDOPA\LEVODOPA
     Dosage: AM=8ML; CD=3.3ML/H FOR 16HRS; ED=2ML
     Route: 050
     Dates: start: 20151211, end: 20160225
  14. MOVICOL [Concomitant]
     Active Substance: POLYETHYLENE GLYCOL 3350\POTASSIUM CHLORIDE\SODIUM BICARBONATE\SODIUM CHLORIDE
     Indication: PRODUCT USED FOR UNKNOWN INDICATION
  15. PROLOPA [Concomitant]
     Active Substance: BENSERAZIDE\LEVODOPA
     Indication: PRODUCT USED FOR UNKNOWN INDICATION
     Dosage: FORM STRENGTH: 100MG/25MG

REACTIONS (14)
  - Freezing phenomenon [Not Recovered/Not Resolved]
  - Gastrointestinal disorder [Unknown]
  - Intestinal dilatation [Unknown]
  - Dyskinesia [Not Recovered/Not Resolved]
  - Diarrhoea [Recovering/Resolving]
  - Large intestinal obstruction [Unknown]
  - Mobility decreased [Not Recovered/Not Resolved]
  - Stress [Not Recovered/Not Resolved]
  - Dyskinesia [Unknown]
  - Drug effect incomplete [Unknown]
  - Diarrhoea [Not Recovered/Not Resolved]
  - Gastric ulcer haemorrhage [Unknown]
  - Somnolence [Unknown]
  - Hypotension [Unknown]

NARRATIVE: CASE EVENT DATE: 20160323
